FAERS Safety Report 7955427-8 (Version None)
Quarter: 2011Q4

REPORT INFORMATION
  Report Type: 
  Country: None (occurrence: None)
  Receive Date: 20111202
  Receipt Date: 20111111
  Transmission Date: 20120403
  Serious: Yes (Other)
  Sender: FDA-Public Use
  Company Number: US-ABBOTT-11P-163-0875091-00

PATIENT
  Sex: Female
  Weight: 64.468 kg

DRUGS (8)
  1. PRAVASTATIN [Concomitant]
     Indication: BLOOD CHOLESTEROL INCREASED
     Route: 048
  2. QUINAPRIL [Concomitant]
     Indication: PRODUCT USED FOR UNKNOWN INDICATION
     Route: 048
  3. ASPIRIN [Concomitant]
     Indication: PRODUCT USED FOR UNKNOWN INDICATION
     Route: 048
  4. NIASPAN [Suspect]
     Indication: BLOOD CHOLESTEROL INCREASED
     Dosage: AT BEDTIME
     Route: 048
     Dates: start: 20100801
  5. LOVAZA [Concomitant]
     Indication: BLOOD CHOLESTEROL INCREASED
     Route: 048
  6. NIASPAN [Suspect]
     Indication: BLOOD TRIGLYCERIDES INCREASED
  7. AMLODIPINE [Concomitant]
     Indication: PRODUCT USED FOR UNKNOWN INDICATION
     Route: 048
  8. PROPRANOLOL [Concomitant]
     Indication: PRODUCT USED FOR UNKNOWN INDICATION
     Route: 048

REACTIONS (11)
  - JOINT INJURY [None]
  - FLUSHING [None]
  - URTICARIA [None]
  - BLOOD TRIGLYCERIDES INCREASED [None]
  - HYPOAESTHESIA [None]
  - LOW DENSITY LIPOPROTEIN INCREASED [None]
  - CEREBROVASCULAR ACCIDENT [None]
  - PRURITUS [None]
  - FALL [None]
  - CARDIAC VALVE DISEASE [None]
  - BLOOD CHOLESTEROL INCREASED [None]
